FAERS Safety Report 6142203-4 (Version None)
Quarter: 2009Q2

REPORT INFORMATION
  Report Type: 
  Country: None (occurrence: None)
  Receive Date: 20090403
  Receipt Date: 20080422
  Transmission Date: 20091009
  Serious: Yes (Death, Hospitalization)
  Sender: FDA-Public Use
  Company Number: US-ASTRAZENECA-2007UW09510

PATIENT
  Age: 17522 Day
  Sex: Male

DRUGS (21)
  1. SEROQUEL [Suspect]
     Indication: BIPOLAR DISORDER
     Dosage: 750 MG - 800 MG
     Route: 048
     Dates: start: 19970501, end: 20040128
  2. SEROQUEL [Suspect]
     Indication: PSYCHOTIC DISORDER
     Dosage: 750 MG - 800 MG
     Route: 048
     Dates: start: 19970501, end: 20040128
  3. SEROQUEL [Suspect]
     Route: 048
     Dates: start: 20040129, end: 20041125
  4. SEROQUEL [Suspect]
     Route: 048
     Dates: start: 20040129, end: 20041125
  5. SEROQUEL [Suspect]
     Dosage: 25MG, 50MG, 100MG, 200MG, 300MG, 600MG
     Route: 048
  6. SEROQUEL [Suspect]
     Dosage: 25MG, 50MG, 100MG, 200MG, 300MG, 600MG
     Route: 048
  7. RISPERDAL [Concomitant]
     Route: 048
     Dates: start: 20040119, end: 20041111
  8. LITHIUM CARBONATE [Concomitant]
  9. INDERAL LA [Concomitant]
  10. HYDROCHLOROTHIAZIDE [Concomitant]
  11. PRAVACHOL [Concomitant]
  12. POTASSIUM CHLORIDE [Concomitant]
  13. LESCOL [Concomitant]
  14. PROLIXIN [Concomitant]
  15. METFORMIN HCL [Concomitant]
  16. GLIPIZIDE [Concomitant]
  17. TRAZODONE HCL [Concomitant]
  18. GEODON [Concomitant]
  19. MIRALAX [Concomitant]
  20. ASPIRIN [Concomitant]
  21. COGENTIN [Concomitant]

REACTIONS (9)
  - ADJUSTMENT DISORDER [None]
  - DEATH [None]
  - DEPRESSION [None]
  - OVERDOSE [None]
  - PSYCHOTIC DISORDER [None]
  - SCHIZOAFFECTIVE DISORDER [None]
  - STRESS [None]
  - SUICIDE ATTEMPT [None]
  - TYPE 2 DIABETES MELLITUS [None]
